FAERS Safety Report 8817034 (Version 1)
Quarter: 2012Q4

REPORT INFORMATION
  Report Type: Spontaneous
  Country: US (occurrence: None)
  Receive Date: 20121003
  Receipt Date: 20121003
  Transmission Date: 20130627
  Serious: Yes (Death)
  Sender: FDA-Public Use
  Company Number: None

PATIENT
  Age: 71 Year
  Sex: Male

DRUGS (10)
  1. REVLIMID [Suspect]
     Indication: MULTIPLE MYELOMA
     Dosage: 10 g  qd x 21/28d  by mouth
     Route: 048
     Dates: start: 201009
  2. REVLIMID [Suspect]
     Indication: MULTIPLE MYELOMA
     Dates: start: 201111
  3. DEXAMETHASONE [Concomitant]
  4. ASA [Concomitant]
  5. ATENOLOL [Concomitant]
  6. LISINOPRIL [Concomitant]
  7. PRAZOSIN [Concomitant]
  8. METOCLOPRAMIDE [Concomitant]
  9. FAMOTIDINE [Concomitant]
  10. FLUOXETINE [Concomitant]

REACTIONS (5)
  - Aortic rupture [None]
  - Post procedural complication [None]
  - Pneumonia [None]
  - Full blood count decreased [None]
  - Plasma cell myeloma [None]
